FAERS Safety Report 5776579-4 (Version None)
Quarter: 2008Q2

REPORT INFORMATION
  Report Type: 
  Country: None (occurrence: None)
  Receive Date: 20080618
  Receipt Date: 20080607
  Transmission Date: 20081010
  Serious: Yes (Death, Other)
  Sender: FDA-Public Use
  Company Number: US-NOVOPROD-276352

PATIENT
  Age: 52 Year
  Sex: Male

DRUGS (2)
  1. NOVOSEVEN [Suspect]
     Indication: HAEMORRHAGE
     Dosage: 4.8 MG, SINGLE
     Route: 042
     Dates: start: 20080607, end: 20080607
  2. NOVOSEVEN [Suspect]
     Dosage: 2.4 MG, SINGLE
     Route: 042
     Dates: start: 20080607, end: 20080607

REACTIONS (2)
  - DRUG INEFFECTIVE [None]
  - HAEMORRHAGE [None]
